FAERS Safety Report 25139762 (Version 3)
Quarter: 2025Q3

REPORT INFORMATION
  Report Type: Spontaneous
  Country: JP (occurrence: JP)
  Receive Date: 20250331
  Receipt Date: 20250718
  Transmission Date: 20251020
  Serious: No
  Sender: AMGEN
  Company Number: JP-AMGEN-JPNSP2025047881

PATIENT
  Age: 50 Year
  Sex: Female
  Weight: 61 kg

DRUGS (6)
  1. EVENITY [Suspect]
     Active Substance: ROMOSOZUMAB-AQQG
     Indication: Osteoporosis
     Dosage: 210 MILLIGRAM, QMO
     Route: 058
     Dates: start: 20241121, end: 20250221
  2. INSULIN GLARGINE [Concomitant]
     Active Substance: INSULIN GLARGINE
  3. JARDIANCE [Concomitant]
     Active Substance: EMPAGLIFLOZIN
  4. CANDESARTAN [Concomitant]
     Active Substance: CANDESARTAN
  5. ROSUVASTATIN [Concomitant]
     Active Substance: ROSUVASTATIN
  6. ALFACALCIDOL [Concomitant]
     Active Substance: ALFACALCIDOL
     Indication: Osteoporosis
     Dosage: 1 MICROGRAM, QD
     Dates: start: 20241121, end: 20250221

REACTIONS (1)
  - Alopecia [Unknown]

NARRATIVE: CASE EVENT DATE: 20240101
